FAERS Safety Report 26051157 (Version 1)
Quarter: 2025Q4

REPORT INFORMATION
  Report Type: Spontaneous
  Country: JP (occurrence: JP)
  Receive Date: 20251117
  Receipt Date: 20251117
  Transmission Date: 20260117
  Serious: Yes (Hospitalization)
  Sender: MERCK SHARP & DOHME LLC
  Company Number: JP-009507513-2325690

PATIENT
  Age: 78 Year
  Sex: Female
  Weight: 40.1 kg

DRUGS (8)
  1. KEYTRUDA [Suspect]
     Active Substance: PEMBROLIZUMAB
     Indication: Uterine cancer
     Route: 041
     Dates: start: 20240926, end: 20241209
  2. KEYTRUDA [Suspect]
     Active Substance: PEMBROLIZUMAB
     Indication: Uterine cancer
     Route: 041
     Dates: start: 20250220, end: 20250609
  3. LENVIMA [Concomitant]
     Active Substance: LENVATINIB
     Indication: Uterine cancer
     Dosage: AFTER BREAKFAST
     Route: 048
     Dates: start: 20240926, end: 20241209
  4. LENVIMA [Concomitant]
     Active Substance: LENVATINIB
     Indication: Uterine cancer
     Dosage: AFTER BREAKFAST
     Route: 048
     Dates: start: 20250220, end: 20250322
  5. LENVIMA [Concomitant]
     Active Substance: LENVATINIB
     Indication: Uterine cancer
     Dosage: AFTER BREAKFAST
     Route: 048
     Dates: start: 20250512, end: 20250609
  6. ADETPHOS KOWA GRANULES 10 [Concomitant]
     Dosage: TIME INTERVAL: 0.33333333 DAYS: AFTER EACH MEAL
     Route: 065
     Dates: start: 20250203
  7. Methycobal Tablets 500 microgram [Concomitant]
     Dosage: TIME INTERVAL: 0.33333333 DAYS: AFTER EACH MEAL
     Route: 048
     Dates: start: 20250203
  8. SUMURA Saireito Extract Granules for Ethical [Concomitant]
     Dosage: TIME INTERVAL: 0.33333333 DAYS: BEFORE EACH MEAL
     Route: 065
     Dates: start: 20250317

REACTIONS (2)
  - Immune-mediated adverse reaction [Recovering/Resolving]
  - Cholangitis sclerosing [Recovering/Resolving]

NARRATIVE: CASE EVENT DATE: 20250609
